FAERS Safety Report 7754122-8 (Version None)
Quarter: 2011Q3

REPORT INFORMATION
  Report Type: 
  Country: None (occurrence: None)
  Receive Date: 20110915
  Receipt Date: 20110905
  Transmission Date: 20111222
  Serious: Yes (Hospitalization, Other)
  Sender: FDA-Public Use
  Company Number: SI-CELGENEUS-261-50794-11070419

PATIENT
  Age: 80 Year
  Sex: Male

DRUGS (4)
  1. VIDAZA [Suspect]
     Indication: MYELODYSPLASTIC SYNDROME
     Route: 058
     Dates: start: 20101215
  2. VIDAZA [Suspect]
     Route: 058
  3. CYKLOKAPRON [Concomitant]
     Route: 065
  4. CORDARONE [Concomitant]
     Route: 065

REACTIONS (2)
  - LUNG INFILTRATION [None]
  - THROMBOCYTOPENIA [None]
